FAERS Safety Report 19608102 (Version 3)
Quarter: 2021Q4

REPORT INFORMATION
  Report Type: Report from Study
  Country: US (occurrence: US)
  Receive Date: 20210726
  Receipt Date: 20211007
  Transmission Date: 20220303
  Serious: Yes (Hospitalization)
  Sender: FDA-Public Use
  Company Number: NVSC2021US166516

PATIENT
  Sex: Female

DRUGS (1)
  1. KISQALI [Suspect]
     Active Substance: RIBOCICLIB
     Indication: Breast cancer
     Dosage: UNK
     Route: 065

REACTIONS (5)
  - Urinary tract infection [Unknown]
  - Back pain [Unknown]
  - Nausea [Recovered/Resolved]
  - Fatigue [Unknown]
  - Dry skin [Recovered/Resolved]
